FAERS Safety Report 9551667 (Version 2)
Quarter: 2013Q3

REPORT INFORMATION
  Report Type: Spontaneous
  Country: US (occurrence: US)
  Receive Date: 20130925
  Receipt Date: 20130925
  Transmission Date: 20140515
  Serious: No
  Sender: FDA-Public Use
  Company Number: US-MYLANLABS-2013S1009100

PATIENT
  Age: 91 Year
  Sex: Female
  Weight: 65.77 kg

DRUGS (1)
  1. SPIRONOLACTONE TABLETS, USP [Suspect]
     Route: 048
     Dates: start: 1998

REACTIONS (1)
  - Pruritus [Not Recovered/Not Resolved]
